FAERS Safety Report 13412528 (Version 3)
Quarter: 2022Q3

REPORT INFORMATION
  Report Type: Spontaneous
  Country: US (occurrence: US)
  Receive Date: 20170406
  Receipt Date: 20220828
  Transmission Date: 20221027
  Serious: No
  Sender: FDA-Public Use
  Company Number: US-JNJFOC-20170308377

PATIENT
  Age: 2 Decade
  Sex: Male

DRUGS (7)
  1. RISPERDAL [Suspect]
     Active Substance: RISPERIDONE
     Indication: Bipolar disorder
     Route: 048
     Dates: start: 20131023
  2. RISPERDAL [Suspect]
     Active Substance: RISPERIDONE
     Indication: Attention deficit hyperactivity disorder
     Route: 048
     Dates: end: 20140221
  3. RISPERDAL [Suspect]
     Active Substance: RISPERIDONE
     Indication: Anxiety
     Route: 048
     Dates: start: 20140613, end: 20150317
  4. RISPERDAL [Suspect]
     Active Substance: RISPERIDONE
     Route: 048
     Dates: end: 20150329
  5. RISPERIDONE [Suspect]
     Active Substance: RISPERIDONE
     Indication: Bipolar disorder
     Dosage: VARYING DOSES OF UNSPECIFIED DOSE AND 0.5 MG AND VARIABLE FREQUENCIES (UNSPECIFIED AND TWICE DAILY)
     Route: 048
     Dates: start: 20131023, end: 20140215
  6. RISPERIDONE [Suspect]
     Active Substance: RISPERIDONE
     Indication: Attention deficit hyperactivity disorder
     Route: 048
     Dates: start: 20140609, end: 20140613
  7. RISPERIDONE [Suspect]
     Active Substance: RISPERIDONE
     Indication: Anxiety
     Route: 048
     Dates: end: 20150329

REACTIONS (2)
  - Emotional disorder [Unknown]
  - Gynaecomastia [Unknown]
